FAERS Safety Report 17451247 (Version 1)
Quarter: 2020Q1

REPORT INFORMATION
  Report Type: Spontaneous
  Country: US (occurrence: US)
  Receive Date: 20200224
  Receipt Date: 20200224
  Transmission Date: 20200409
  Serious: No
  Sender: FDA-Public Use
  Company Number: US-SA-2020SA046193

PATIENT
  Age: 30 Year
  Sex: Male

DRUGS (5)
  1. ALBUTEROL HFA [Concomitant]
     Active Substance: ALBUTEROL SULFATE
     Dosage: UNK
  2. DUPIXENT [Suspect]
     Active Substance: DUPILUMAB
     Indication: DERMATITIS ATOPIC
     Dosage: 2ML , QOW
     Route: 058
  3. HUMIRA [Concomitant]
     Active Substance: ADALIMUMAB
     Dosage: UNK
  4. TRIAMCINOLONE ACETONIDE. [Concomitant]
     Active Substance: TRIAMCINOLONE ACETONIDE
     Dosage: UNK
  5. DESONIDE. [Concomitant]
     Active Substance: DESONIDE
     Dosage: UNK

REACTIONS (1)
  - Eye pruritus [Unknown]

NARRATIVE: CASE EVENT DATE: 202002
